FAERS Safety Report 9791756 (Version 1)
Quarter: 2014Q1

REPORT INFORMATION
  Report Type: Spontaneous
  Country: FR (occurrence: FR)
  Receive Date: 20140102
  Receipt Date: 20140102
  Transmission Date: 20141002
  Serious: Yes (Hospitalization)
  Sender: FDA-Public Use
  Company Number: FR-JNJFOC-20131216619

PATIENT
  Age: 45 Year
  Sex: Female

DRUGS (9)
  1. RISPERDAL CONSTA [Suspect]
     Indication: SCHIZOPHRENIA, PARANOID TYPE
     Route: 030
     Dates: start: 2005
  2. APIDRA [Suspect]
     Indication: TYPE 1 DIABETES MELLITUS
     Dosage: 3UI PER MEAL
     Route: 058
     Dates: start: 2008
  3. LANTUS [Suspect]
     Indication: TYPE 1 DIABETES MELLITUS
     Dosage: 66UI (38UI IN THE MORNING AND 28 UI IN THE EVENING)
     Route: 058
     Dates: start: 2007
  4. ABILIFY [Concomitant]
     Indication: SCHIZOPHRENIA, PARANOID TYPE
     Dosage: 2 TABLETS
     Route: 048
     Dates: start: 2009
  5. SERESTA [Concomitant]
     Indication: ANXIETY
     Dosage: IF NEEDED
     Route: 048
     Dates: start: 2009
  6. LASILIX [Concomitant]
     Indication: HYPERTENSION
     Route: 048
     Dates: start: 2012
  7. IPRATROPIUM [Concomitant]
     Indication: CHRONIC OBSTRUCTIVE PULMONARY DISEASE
     Dosage: 0.5MG/2ML
     Route: 055
     Dates: start: 20131125
  8. TERCIAN [Concomitant]
     Indication: SCHIZOPHRENIA, PARANOID TYPE
     Dosage: 25MG TABLET (2.5 TABLETS PER DAY)
     Route: 048
     Dates: start: 2009
  9. RAMIPRIL [Concomitant]
     Indication: HYPERTENSION
     Dosage: 2.5MG: 2.5 TABLETS
     Route: 048
     Dates: start: 2012

REACTIONS (1)
  - Hypoglycaemic coma [Recovered/Resolved]
